FAERS Safety Report 9372147 (Version 5)
Quarter: 2013Q3

REPORT INFORMATION
  Report Type: Report from Study
  Country: IE (occurrence: IE)
  Receive Date: 20130627
  Receipt Date: 20130903
  Transmission Date: 20140515
  Serious: Yes (Hospitalization, Disabling)
  Sender: FDA-Public Use
  Company Number: IE-BAYER-2013-038707

PATIENT
  Age: 69 Year
  Sex: Male

DRUGS (8)
  1. NEXAVAR [Suspect]
     Indication: HEPATOCELLULAR CARCINOMA
     Dosage: 200 MG, BID
     Route: 048
     Dates: start: 20130321, end: 20130325
  2. NEXAVAR [Suspect]
     Indication: HEPATOCELLULAR CARCINOMA
     Dosage: 200 MG, BID
     Dates: start: 201304, end: 201304
  3. NEXAVAR [Suspect]
     Indication: HEPATOCELLULAR CARCINOMA
     Dosage: 200MG/DAY
     Route: 048
     Dates: start: 201304
  4. NEXAVAR [Suspect]
     Indication: HEPATOCELLULAR CARCINOMA
     Dosage: 200 MG, QD
     Dates: start: 20130524, end: 2013
  5. NEXAVAR [Suspect]
     Indication: HEPATOCELLULAR CARCINOMA
     Dosage: 200 MG, BID
     Dates: start: 20130612, end: 2013
  6. RIFAXIMIN [Concomitant]
     Dosage: 400 MG, TID
  7. DIAMICRON MR [Concomitant]
     Dosage: 110 MG, QD
  8. LACTULOSE [Concomitant]

REACTIONS (6)
  - Confusional state [Recovered/Resolved]
  - Somnolence [None]
  - Fatigue [Recovered/Resolved]
  - Fatigue [None]
  - Decreased appetite [None]
  - Blood pressure increased [None]
